FAERS Safety Report 20073807 (Version 1)
Quarter: 2021Q4

REPORT INFORMATION
  Report Type: Spontaneous
  Country: US (occurrence: US)
  Receive Date: 20211116
  Receipt Date: 20211116
  Transmission Date: 20220303
  Serious: No
  Sender: FDA-Public Use
  Company Number: US-ALLERGAN-2100278US

PATIENT
  Age: 68 Year
  Sex: Female

DRUGS (3)
  1. ALPHAGAN P [Interacting]
     Active Substance: BRIMONIDINE TARTRATE
     Indication: Glaucoma
     Dosage: 2 GTT, BID
     Route: 047
     Dates: start: 20201228
  2. LATANOPROST [Interacting]
     Active Substance: LATANOPROST
     Indication: Product used for unknown indication
     Dosage: UNK
     Route: 047
  3. PEPCID [Concomitant]
     Active Substance: FAMOTIDINE

REACTIONS (24)
  - Poor quality sleep [Recovered/Resolved]
  - Feeling abnormal [Unknown]
  - Anxiety [Unknown]
  - Nasal congestion [Unknown]
  - Dry throat [Unknown]
  - Choking sensation [Unknown]
  - Ocular discomfort [Unknown]
  - Epigastric discomfort [Unknown]
  - Myalgia [Unknown]
  - Nausea [Unknown]
  - Sneezing [Unknown]
  - Drug interaction [Unknown]
  - Fatigue [Unknown]
  - Depression [Unknown]
  - Eye pruritus [Unknown]
  - Headache [Unknown]
  - Eye pain [Unknown]
  - Somnolence [Unknown]
  - Dry mouth [Unknown]
  - Eye irritation [Unknown]
  - Asthenia [Unknown]
  - Blepharitis [Unknown]
  - Eye discharge [Unknown]
  - Dry eye [Unknown]
